FAERS Safety Report 10798562 (Version 1)
Quarter: 2015Q1

REPORT INFORMATION
  Report Type: Spontaneous
  Country: US (occurrence: US)
  Receive Date: 20150216
  Receipt Date: 20150216
  Transmission Date: 20150721
  Serious: No
  Sender: FDA-Public Use
  Company Number: US-ASTRAZENECA-2014SE26502

PATIENT
  Age: 55 Year
  Sex: Female
  Weight: 64.4 kg

DRUGS (8)
  1. TOPROL XL [Suspect]
     Active Substance: METOPROLOL SUCCINATE
     Indication: PALPITATIONS
     Route: 048
     Dates: start: 20140415
  2. PEPCID [Suspect]
     Active Substance: FAMOTIDINE
     Indication: HYPERCHLORHYDRIA
     Route: 065
  3. TYELENOL [Concomitant]
  4. TOPROL XL [Suspect]
     Active Substance: METOPROLOL SUCCINATE
     Indication: HYPERTENSION
     Dosage: 75 MG, INCREASED DOSE BY A QUARTER OR PART OF THE 50 MG TABLET BY BREAKING TABLET
     Route: 048
     Dates: start: 20140404, end: 20140411
  5. TOPROL XL [Suspect]
     Active Substance: METOPROLOL SUCCINATE
     Indication: PALPITATIONS
     Dosage: 75 MG, INCREASED DOSE BY A QUARTER OR PART OF THE 50 MG TABLET BY BREAKING TABLET
     Route: 048
     Dates: start: 20140404, end: 20140411
  6. TOPROL XL [Suspect]
     Active Substance: METOPROLOL SUCCINATE
     Indication: HYPERTENSION
     Route: 048
     Dates: start: 20140415
  7. TOPROL XL [Suspect]
     Active Substance: METOPROLOL SUCCINATE
     Indication: PALPITATIONS
     Route: 048
  8. TOPROL XL [Suspect]
     Active Substance: METOPROLOL SUCCINATE
     Indication: HYPERTENSION
     Route: 048

REACTIONS (11)
  - Gastrointestinal pain [Not Recovered/Not Resolved]
  - Nausea [Not Recovered/Not Resolved]
  - Cough [Not Recovered/Not Resolved]
  - Decreased appetite [Not Recovered/Not Resolved]
  - Abdominal rigidity [Recovering/Resolving]
  - Intentional product use issue [Not Recovered/Not Resolved]
  - Oesophageal spasm [Unknown]
  - Intentional product use issue [Recovered/Resolved]
  - Dry mouth [Not Recovered/Not Resolved]
  - Palpitations [Recovering/Resolving]
  - Dyspepsia [Not Recovered/Not Resolved]

NARRATIVE: CASE EVENT DATE: 201401
